FAERS Safety Report 4559066-0 (Version None)
Quarter: 2005Q1

REPORT INFORMATION
  Report Type: 
  Country: None (occurrence: None)
  Receive Date: 20050124
  Receipt Date: 20050112
  Transmission Date: 20050727
  Serious: Yes (Other)
  Sender: FDA-Public Use
  Company Number: AU-NOVOPROD-241589

PATIENT
  Age: 44 Year

DRUGS (1)
  1. NOVOMIX 30 [Suspect]
     Indication: ILL-DEFINED DISORDER

REACTIONS (1)
  - THROMBOSIS [None]
